FAERS Safety Report 8512640-9 (Version None)
Quarter: 2012Q3

REPORT INFORMATION
  Report Type: 
  Country: None (occurrence: None)
  Receive Date: 20120716
  Receipt Date: 20120711
  Transmission Date: 20120928
  Serious: Yes (Life-Threatening, Hospitalization)
  Sender: FDA-Public Use
  Company Number: CA-TEVA-347100USA

PATIENT
  Sex: Male
  Weight: 118 kg

DRUGS (3)
  1. ALLOPURINOL [Concomitant]
     Indication: PROPHYLAXIS
     Dosage: 100 MILLIGRAM;
     Route: 048
     Dates: start: 20080101
  2. TREANDA [Suspect]
     Indication: NON-HODGKIN'S LYMPHOMA UNSPECIFIED HISTOLOGY INDOLENT
     Route: 042
     Dates: start: 20120627
  3. RANITIDINE [Concomitant]
     Indication: PROPHYLAXIS
     Dosage: 300 MILLIGRAM;
     Route: 048
     Dates: start: 20120627

REACTIONS (1)
  - PULMONARY EMBOLISM [None]
